FAERS Safety Report 22341417 (Version 3)
Quarter: 2024Q3

REPORT INFORMATION
  Report Type: Spontaneous
  Country: US (occurrence: US)
  Receive Date: 20230518
  Receipt Date: 20240711
  Transmission Date: 20241017
  Serious: Yes (Other)
  Sender: BIOMARIN
  Company Number: US-SA-SAC20230516001307

PATIENT

DRUGS (2)
  1. LARONIDASE [Suspect]
     Active Substance: LARONIDASE
     Indication: Mucopolysaccharidosis I
     Dosage: 17.4 MG, QW
     Route: 042
  2. LARONIDASE [Suspect]
     Active Substance: LARONIDASE
     Dosage: 14.5 UNK, QW
     Route: 042
     Dates: start: 20161221

REACTIONS (5)
  - Anaphylactic reaction [Unknown]
  - Pyrexia [Unknown]
  - Bronchial disorder [Not Recovered/Not Resolved]
  - Respiration abnormal [Not Recovered/Not Resolved]
  - Lung disorder [Not Recovered/Not Resolved]

NARRATIVE: CASE EVENT DATE: 20231108
